FAERS Safety Report 21952658 (Version 1)
Quarter: 2023Q1

REPORT INFORMATION
  Report Type: Spontaneous
  Country: US (occurrence: US)
  Receive Date: 20230203
  Receipt Date: 20230203
  Transmission Date: 20230417
  Serious: Yes (Other)
  Sender: FDA-Public Use
  Company Number: US-MALLINCKRODT-T202300717

PATIENT
  Age: 14 Year
  Sex: Female

DRUGS (1)
  1. INOMAX [Suspect]
     Active Substance: NITRIC OXIDE
     Indication: Respiratory failure
     Dosage: UNK, INHALATION
     Route: 055

REACTIONS (8)
  - Pulmonary haemorrhage [Unknown]
  - Intracardiac thrombus [Unknown]
  - Pulmonary hypertension [Unknown]
  - Granulomatosis with polyangiitis [Unknown]
  - Condition aggravated [Not Recovered/Not Resolved]
  - Hypoxia [Not Recovered/Not Resolved]
  - Drug ineffective for unapproved indication [Unknown]
  - Product use issue [Unknown]
